FAERS Safety Report 19231939 (Version 1)
Quarter: 2021Q2

REPORT INFORMATION
  Report Type: Spontaneous
  Country: FR (occurrence: FR)
  Receive Date: 20210507
  Receipt Date: 20210507
  Transmission Date: 20210717
  Serious: Yes (Hospitalization)
  Sender: FDA-Public Use
  Company Number: FR-PFIZER INC-2021478201

PATIENT
  Age: 27 Year
  Sex: Male
  Weight: 87.3 kg

DRUGS (11)
  1. TERCIAN [CYAMEMAZINE TARTRATE] [Suspect]
     Active Substance: CYAMEMAZINE
     Indication: SCHIZOPHRENIA
     Dosage: 150 MG, DAILY; 25 MG MORNING AND MIDDAY AND 100MG IN THE EVENING
     Route: 048
  2. LANSOYL [Concomitant]
     Active Substance: MINERAL OIL
     Dosage: UNK
  3. PARACETAMOL [Concomitant]
     Active Substance: ACETAMINOPHEN
     Dosage: UNK
  4. OLANZAPINE. [Suspect]
     Active Substance: OLANZAPINE
     Indication: SCHIZOPHRENIA
     Dosage: 10 MG, 1X/DAY IN THE EVENING
     Route: 048
     Dates: start: 202012
  5. ACTISKENAN [Concomitant]
     Active Substance: MORPHINE SULFATE
     Dosage: UNK
  6. SKENAN [Concomitant]
     Active Substance: MORPHINE SULFATE
     Dosage: UNK
  7. TRANXENE [Suspect]
     Active Substance: CLORAZEPATE DIPOTASSIUM
     Indication: MIXED ANXIETY AND DEPRESSIVE DISORDER
     Dosage: 40 MG, 2X/DAY
     Route: 048
  8. MOGADON [Suspect]
     Active Substance: NITRAZEPAM
     Indication: SLEEP DISORDER
     Dosage: 1 DF, 1X/DAY IN THE EVENING
     Route: 048
  9. VENLAFAXINE HCL [Suspect]
     Active Substance: VENLAFAXINE HYDROCHLORIDE
     Indication: DEPRESSION
     Dosage: 150 MG, DAILY (2X75MG IN THE MORNING
     Route: 048
  10. QUETIAPINE. [Suspect]
     Active Substance: QUETIAPINE
     Indication: SCHIZOPHRENIA
     Dosage: UNK
     Route: 048
     Dates: start: 202011, end: 202012
  11. VENTOLINE [SALBUTAMOL] [Concomitant]
     Active Substance: ALBUTEROL SULFATE
     Dosage: UNK

REACTIONS (3)
  - Pulmonary embolism [Recovered/Resolved]
  - Cor pulmonale acute [Recovered/Resolved]
  - Peripheral sensory neuropathy [Not Recovered/Not Resolved]

NARRATIVE: CASE EVENT DATE: 20210324
